FAERS Safety Report 4503299-6 (Version None)
Quarter: 2004Q4

REPORT INFORMATION
  Report Type: 
  Country: None (occurrence: None)
  Receive Date: 20041117
  Receipt Date: 20041108
  Transmission Date: 20050328
  Serious: Yes (Hospitalization)
  Sender: FDA-Public Use
  Company Number: BE-JNJFOC-20041007009

PATIENT
  Age: 67 Year
  Sex: Female

DRUGS (1)
  1. PROPULSID [Suspect]
     Route: 049
     Dates: start: 20030827, end: 20031108

REACTIONS (3)
  - CONDITION AGGRAVATED [None]
  - GASTRIC OUTLET OBSTRUCTION [None]
  - GASTRIC STENOSIS [None]
